FAERS Safety Report 9052588 (Version 1)
Quarter: 2013Q1

REPORT INFORMATION
  Report Type: Spontaneous
  Country: US (occurrence: US)
  Receive Date: 20130207
  Receipt Date: 20130207
  Transmission Date: 20140127
  Serious: No
  Sender: FDA-Public Use
  Company Number: US-PFIZER INC-2013048930

PATIENT
  Sex: 0

DRUGS (3)
  1. LYRICA [Suspect]
     Indication: POST HERPETIC NEURALGIA
     Dosage: UNK, ONCE A DAY
  2. LYRICA [Suspect]
     Dosage: UNK, TWICE A DAY
  3. LYRICA [Suspect]
     Dosage: UNK, THREE TIMES A DAY

REACTIONS (1)
  - Drug effect incomplete [Unknown]
